FAERS Safety Report 20540926 (Version 1)
Quarter: 2022Q1

REPORT INFORMATION
  Report Type: Report from Study
  Country: US (occurrence: US)
  Receive Date: 20220302
  Receipt Date: 20220302
  Transmission Date: 20220423
  Serious: Yes (Death, Hospitalization)
  Sender: FDA-Public Use
  Company Number: US-JNJFOC-20211009031

PATIENT
  Age: 78 Year
  Sex: Female
  Weight: 80.358 kg

DRUGS (1)
  1. TREMFYA [Suspect]
     Active Substance: GUSELKUMAB
     Indication: Psoriatic arthropathy
     Route: 058

REACTIONS (4)
  - Death [Fatal]
  - Mechanical ventilation [Unknown]
  - Off label use [Unknown]
  - Product use in unapproved indication [Unknown]
